FAERS Safety Report 6137483-5 (Version None)
Quarter: 2009Q1

REPORT INFORMATION
  Report Type: 
  Country: None (occurrence: None)
  Receive Date: 20090326
  Receipt Date: 20090319
  Transmission Date: 20090719
  Serious: Yes (Hospitalization)
  Sender: FDA-Public Use
  Company Number: ADE2009-0491

PATIENT
  Age: 9 Year
  Sex: Male

DRUGS (11)
  1. DIDANOSINE [Suspect]
     Indication: URTICARIA
  2. ZIDOVUDINE [Suspect]
     Indication: URTICARIA
  3. ABACAVIR [Suspect]
     Indication: URTICARIA
  4. CO-TRIMOXAZOLE [Suspect]
  5. EFAVIRENZ [Suspect]
     Indication: HIV INFECTION
  6. LAMIVUDINE [Suspect]
     Indication: HIV INFECTION
  7. MYCOPHENOLATE MOFETIL [Suspect]
     Indication: PROPHYLAXIS AGAINST TRANSPLANT REJECTION
  8. NELFINAVIR [Suspect]
     Indication: HIV INFECTION
  9. PREDNISOLONE [Suspect]
     Indication: PROPHYLAXIS AGAINST TRANSPLANT REJECTION
  10. RALTEGRAVIR [Suspect]
     Indication: HIV INFECTION
  11. SIROLIMUS [Suspect]
     Indication: PROPHYLAXIS AGAINST TRANSPLANT REJECTION

REACTIONS (20)
  - ACUTE HEPATIC FAILURE [None]
  - BLOOD IMMUNOGLOBULIN E INCREASED [None]
  - CACHEXIA [None]
  - CHOLESTASIS [None]
  - DRUG TOXICITY [None]
  - GRAFT DYSFUNCTION [None]
  - HEPATIC ENCEPHALOPATHY [None]
  - HEPATIC NECROSIS [None]
  - HEPATITIS [None]
  - HEPATOMEGALY [None]
  - HYPERLIPIDAEMIA [None]
  - HYPERTENSION [None]
  - LIVER TRANSPLANT [None]
  - LIVER TRANSPLANT REJECTION [None]
  - LYMPHADENOPATHY [None]
  - MYOPATHY [None]
  - PHARYNGITIS [None]
  - PYREXIA [None]
  - RASH [None]
  - RENAL DISORDER [None]
